FAERS Safety Report 8496039-X (Version None)
Quarter: 2012Q3

REPORT INFORMATION
  Report Type: 
  Country: None (occurrence: None)
  Receive Date: 20120709
  Receipt Date: 20120625
  Transmission Date: 20120928
  Serious: Yes (Congenital Anomaly)
  Sender: FDA-Public Use
  Company Number: DE-FRI-1000036898

PATIENT
  Sex: Female
  Weight: 3.93 kg

DRUGS (3)
  1. CITALOPRAM HYDROBROMIDE [Suspect]
     Dosage: 20 MG
     Route: 064
  2. RITALIN [Suspect]
     Dosage: 20 MG, IRREGULAR INTAKE
     Route: 064
  3. FOLIO [Concomitant]
     Dosage: 0.4 MG
     Route: 064

REACTIONS (2)
  - CLEFT LIP AND PALATE [None]
  - FOETAL EXPOSURE DURING PREGNANCY [None]
